FAERS Safety Report 8371350-1 (Version None)
Quarter: 2012Q2

REPORT INFORMATION
  Report Type: 
  Country: None (occurrence: None)
  Receive Date: 20120518
  Receipt Date: 20120504
  Transmission Date: 20120825
  Serious: No
  Sender: FDA-Public Use
  Company Number: US-ENDO PHARMACEUTICALS INC.-OPCR20120714

PATIENT
  Sex: Female

DRUGS (5)
  1. OPANA ER [Suspect]
     Indication: FACIAL BONES FRACTURE
     Route: 048
     Dates: start: 20120101
  2. OPANA ER [Suspect]
     Indication: PAIN
     Route: 048
     Dates: start: 20120401, end: 20120101
  3. OPANA ER [Suspect]
     Indication: ROAD TRAFFIC ACCIDENT
  4. OPANA ER [Suspect]
     Indication: SPINAL FRACTURE
  5. OPANA ER [Suspect]
     Indication: UPPER LIMB FRACTURE

REACTIONS (7)
  - FOREIGN BODY [None]
  - VOMITING [None]
  - NAUSEA [None]
  - GASTROOESOPHAGEAL REFLUX DISEASE [None]
  - DRUG INEFFECTIVE [None]
  - INTENTIONAL DRUG MISUSE [None]
  - ABDOMINAL PAIN UPPER [None]
